FAERS Safety Report 16245781 (Version 1)
Quarter: 2019Q2

REPORT INFORMATION
  Report Type: Spontaneous
  Country: TW (occurrence: TW)
  Receive Date: 20190426
  Receipt Date: 20190426
  Transmission Date: 20190711
  Serious: Yes (Other)
  Sender: FDA-Public Use
  Company Number: TW-ELI_LILLY_AND_COMPANY-TW201904012499

PATIENT
  Age: 45 Year
  Sex: Male
  Weight: 67 kg

DRUGS (10)
  1. ERBITUX [Suspect]
     Active Substance: CETUXIMAB
     Dosage: 500 MG, WEEKLY (1/W)
     Route: 041
     Dates: start: 20170406, end: 20170824
  2. KEMOPLAT [Concomitant]
     Active Substance: CISPLATIN
     Dosage: 60-61 MG, 2/M
     Route: 041
     Dates: start: 20170309, end: 20170330
  3. 5-FU FLUOROURACIL [Concomitant]
     Dosage: 800 MG, UNKNOWN
     Route: 041
     Dates: start: 20170406
  4. KEMOPLAT [Concomitant]
     Active Substance: CISPLATIN
     Dosage: 70-75 MG, 2/M
     Route: 041
     Dates: start: 20161110, end: 20170220
  5. TAXOL [Concomitant]
     Active Substance: PACLITAXEL
     Indication: LIP NEOPLASM MALIGNANT STAGE UNSPECIFIED
     Dosage: 180 MG, UNKNOWN
     Route: 065
  6. PARAPLATIN [Suspect]
     Active Substance: CARBOPLATIN
     Indication: LIP NEOPLASM MALIGNANT STAGE UNSPECIFIED
     Dosage: 200 MG, UNKNOWN
     Route: 042
     Dates: start: 20170406
  7. ERBITUX [Suspect]
     Active Substance: CETUXIMAB
     Indication: LIP NEOPLASM MALIGNANT STAGE UNSPECIFIED
     Dosage: 500 MG, WEEKLY (1/W)
     Route: 041
     Dates: start: 20170309, end: 20170330
  8. 5-FU FLUOROURACIL [Concomitant]
     Dosage: 800-100 MG, UNKNOWN
     Route: 041
     Dates: start: 20170309, end: 20170330
  9. KEMOPLAT [Concomitant]
     Active Substance: CISPLATIN
     Indication: LIP NEOPLASM MALIGNANT STAGE UNSPECIFIED
     Dosage: 64.2-65 MG, 2/M
     Route: 041
     Dates: start: 20161026, end: 20161103
  10. 5-FU FLUOROURACIL [Concomitant]
     Indication: LIP NEOPLASM MALIGNANT STAGE UNSPECIFIED
     Dosage: 1000 MG, UNK
     Route: 041
     Dates: start: 20161110, end: 20170220

REACTIONS (4)
  - Leukopenia [Unknown]
  - Thrombocytopenia [Unknown]
  - Anaemia [Unknown]
  - Decreased appetite [Unknown]

NARRATIVE: CASE EVENT DATE: 20170504
